FAERS Safety Report 15595058 (Version 2)
Quarter: 2018Q4

REPORT INFORMATION
  Report Type: Spontaneous
  Country: JP (occurrence: JP)
  Receive Date: 20181106
  Receipt Date: 20181107
  Transmission Date: 20190205
  Serious: Yes (Other)
  Sender: FDA-Public Use
  Company Number: PHJP2018JP018738

PATIENT
  Age: 32 Year
  Sex: Female

DRUGS (6)
  1. DANAZOL. [Suspect]
     Active Substance: DANAZOL
     Indication: PRODUCT USED FOR UNKNOWN INDICATION
     Dosage: 400 MG, UNK
     Route: 065
     Dates: start: 20110922
  2. DANAZOL. [Suspect]
     Active Substance: DANAZOL
     Dosage: 200 MG, UNK
     Route: 065
  3. ELTROMBOPAG [Suspect]
     Active Substance: ELTROMBOPAG
     Indication: APLASTIC ANAEMIA
     Dosage: 25 MG, UNK
     Route: 048
     Dates: start: 20171228
  4. DANAZOL. [Suspect]
     Active Substance: DANAZOL
     Dosage: 400 MG, UNK
     Route: 065
  5. ELTROMBOPAG [Suspect]
     Active Substance: ELTROMBOPAG
     Dosage: 50 MG, UNK
     Route: 048
  6. CICLOSPORIN [Suspect]
     Active Substance: CYCLOSPORINE
     Indication: APLASTIC ANAEMIA
     Dosage: 6 MG/KG, UNK
     Route: 048
     Dates: start: 20101220

REACTIONS (6)
  - Hepatic function abnormal [Unknown]
  - Drug ineffective [Unknown]
  - Amenorrhoea [Unknown]
  - Hyperlipidaemia [Unknown]
  - Dysphonia [Unknown]
  - Vitreous haemorrhage [Unknown]

NARRATIVE: CASE EVENT DATE: 20110415
